FAERS Safety Report 7184736-8 (Version None)
Quarter: 2010Q4

REPORT INFORMATION
  Report Type: 
  Country: None (occurrence: None)
  Receive Date: 20101222
  Receipt Date: 20100525
  Transmission Date: 20110411
  Serious: No
  Sender: FDA-Public Use
  Company Number: US-AMGEN-TCS414176

PATIENT

DRUGS (10)
  1. ENBREL [Suspect]
     Indication: RHEUMATOID ARTHRITIS
     Dosage: 25 MG, 2 TIMES/WK
  2. FEXOFENADINE HCL [Concomitant]
     Dosage: UNK UNK, UNK
  3. TRIAMTERENE AND HYDROCHLOROTHIAZIDE [Concomitant]
     Dosage: UNK UNK, UNK
  4. ACETAMINOPHEN [Concomitant]
     Dosage: UNK UNK, UNK
  5. CARISOPRODOL [Concomitant]
     Dosage: UNK UNK, UNK
  6. ACETAMINOPHEN AND OXYCODONE HCL [Concomitant]
     Dosage: UNK UNK, UNK
  7. ALENDRONATE SODIUM [Concomitant]
     Dosage: UNK UNK, UNK
  8. GUAIFENESIN [Concomitant]
     Dosage: UNK UNK, UNK
  9. IRON [Concomitant]
     Dosage: UNK UNK, UNK
  10. MULTI-VITAMINS [Concomitant]
     Dosage: UNK UNK, UNK

REACTIONS (2)
  - INCORRECT PRODUCT STORAGE [None]
  - PARAESTHESIA [None]
